FAERS Safety Report 13282048 (Version 1)
Quarter: 2017Q1

REPORT INFORMATION
  Report Type: Spontaneous
  Country: US (occurrence: US)
  Receive Date: 20170228
  Receipt Date: 20170228
  Transmission Date: 20170428
  Serious: No
  Sender: FDA-Public Use
  Company Number: None

PATIENT
  Age: 68 Year
  Sex: Female

DRUGS (1)
  1. COPAXONE [Suspect]
     Active Substance: GLATIRAMER ACETATE
     Indication: MULTIPLE SCLEROSIS
     Route: 058
     Dates: start: 20120712

REACTIONS (5)
  - Nausea [None]
  - Dizziness [None]
  - Lip swelling [None]
  - Hyperhidrosis [None]
  - Peripheral swelling [None]

NARRATIVE: CASE EVENT DATE: 20170224
